FAERS Safety Report 7434432-4 (Version None)
Quarter: 2011Q2

REPORT INFORMATION
  Report Type: 
  Country: None (occurrence: None)
  Receive Date: 20110425
  Receipt Date: 20110419
  Transmission Date: 20111010
  Serious: Yes (Hospitalization)
  Sender: FDA-Public Use
  Company Number: US-TEVA-276132USA

PATIENT
  Sex: Male
  Weight: 69.916 kg

DRUGS (24)
  1. GLUCOSE [Concomitant]
     Indication: FATIGUE
     Route: 042
     Dates: start: 20110302
  2. GLUCOSE [Concomitant]
     Indication: NAUSEA
  3. OMEPRAZOLE [Concomitant]
     Indication: PRODUCT USED FOR UNKNOWN INDICATION
  4. MINOCYCLINE [Concomitant]
     Indication: DERMATITIS ACNEIFORM
     Route: 048
     Dates: start: 20110214
  5. MAGNESIUM OXIDE [Concomitant]
     Indication: HYPOMAGNESAEMIA
     Dosage: 1200 MILLIGRAM;
     Route: 048
     Dates: start: 20110302
  6. SODIUM CHLORIDE [Concomitant]
     Indication: FATIGUE
     Route: 042
     Dates: start: 20110302
  7. MINOCYCLINE [Concomitant]
     Indication: RASH
     Route: 048
     Dates: start: 20110311
  8. CLINDAMYCIN [Concomitant]
     Indication: DERMATITIS ACNEIFORM
     Route: 061
     Dates: start: 20110207
  9. POTASSIUM CHLORIDE [Concomitant]
     Indication: HYPOKALAEMIA
     Route: 048
     Dates: start: 20110131
  10. SODIUM CHLORIDE [Concomitant]
     Indication: ASTHENIA
  11. PROMETHAZINE [Concomitant]
     Indication: NAUSEA
     Route: 048
  12. GRANISETRON HCL [Concomitant]
     Indication: FATIGUE
     Dates: start: 20110302
  13. TEMAZEPAM [Concomitant]
     Indication: PRODUCT USED FOR UNKNOWN INDICATION
  14. DOLASETRON MESYLATE [Concomitant]
     Indication: NAUSEA
     Route: 048
     Dates: start: 20110124
  15. FLUOROURACIL [Suspect]
     Indication: HEAD AND NECK CANCER
     Route: 042
     Dates: start: 20110124, end: 20110323
  16. LORAZEPAM [Concomitant]
  17. LANSOPRAZOLE [Concomitant]
  18. MACROGOL [Concomitant]
     Indication: CONSTIPATION
     Route: 048
     Dates: start: 20110221
  19. GRANISETRON HCL [Concomitant]
     Indication: NAUSEA
  20. CISPLATIN [Suspect]
     Indication: HEAD AND NECK CANCER
     Route: 042
     Dates: start: 20110124, end: 20110323
  21. CETUXIMAB [Suspect]
     Indication: HEAD AND NECK CANCER
     Dosage: LOADING DOSE
     Route: 042
     Dates: start: 20110124, end: 20110330
  22. MACROGOL [Concomitant]
     Indication: PRODUCT USED FOR UNKNOWN INDICATION
  23. PREDNISONE [Concomitant]
     Indication: FATIGUE
     Dosage: 20 MILLIGRAM;
     Route: 048
     Dates: start: 20110330
  24. POTASSIUM CHLORIDE [Concomitant]
     Indication: PRODUCT USED FOR UNKNOWN INDICATION

REACTIONS (12)
  - GASTRITIS [None]
  - MALNUTRITION [None]
  - DIZZINESS [None]
  - VOMITING [None]
  - MALAISE [None]
  - HEART RATE INCREASED [None]
  - HYPOTENSION [None]
  - GASTROINTESTINAL HAEMORRHAGE [None]
  - ELECTROCARDIOGRAM ST-T SEGMENT ABNORMAL [None]
  - FATIGUE [None]
  - BUNDLE BRANCH BLOCK LEFT [None]
  - DUODENAL ULCER [None]
